FAERS Safety Report 11747101 (Version 3)
Quarter: 2020Q1

REPORT INFORMATION
  Report Type: Spontaneous
  Country: US (occurrence: US)
  Receive Date: 20151117
  Receipt Date: 20200110
  Transmission Date: 20200409
  Serious: No
  Sender: FDA-Public Use
  Company Number: US-UCBSA-2014021969

PATIENT
  Age: 17 Year
  Sex: Female

DRUGS (4)
  1. ONFI [Concomitant]
     Active Substance: CLOBAZAM
     Indication: SEIZURE
     Dosage: 35 MG/DAY
  2. VIMPAT [Suspect]
     Active Substance: LACOSAMIDE
     Dosage: 300 MG/DAY
  3. KEPPRA [Suspect]
     Active Substance: LEVETIRACETAM
     Indication: GENERALISED TONIC-CLONIC SEIZURE
     Dosage: UNK
  4. VIMPAT [Suspect]
     Active Substance: LACOSAMIDE
     Indication: SEIZURE
     Dosage: UNK

REACTIONS (8)
  - Fatigue [Unknown]
  - Anxiety [Unknown]
  - Nightmare [Unknown]
  - Adverse drug reaction [Unknown]
  - Seizure [Unknown]
  - Abnormal dreams [Unknown]
  - Anger [Unknown]
  - Therapeutic product effect incomplete [Unknown]
